FAERS Safety Report 22196647 (Version 1)
Quarter: 2023Q2

REPORT INFORMATION
  Report Type: Spontaneous
  Country: IE (occurrence: IE)
  Receive Date: 20230411
  Receipt Date: 20230411
  Transmission Date: 20230722
  Serious: Yes (Hospitalization, Other)
  Sender: FDA-Public Use
  Company Number: IE-MLMSERVICE-20230328-4189440-1

PATIENT
  Age: 60 Year
  Sex: Male

DRUGS (2)
  1. TACROLIMUS [Suspect]
     Active Substance: TACROLIMUS
     Indication: Focal segmental glomerulosclerosis
     Dosage: 1 GRAM, FOR THE PAST 2 YEARS
  2. PREDNISOLONE [Suspect]
     Active Substance: PREDNISOLONE
     Indication: Focal segmental glomerulosclerosis
     Dosage: 60 MILLIGRAM, QD, FOR THE PAST 2 YEARS

REACTIONS (4)
  - Septal panniculitis [Unknown]
  - Cutaneous nocardiosis [Unknown]
  - Pulmonary nocardiosis [Unknown]
  - Off label use [Unknown]
